FAERS Safety Report 8882609 (Version 1)
Quarter: 2012Q4

REPORT INFORMATION
  Report Type: 
  Country: ES (occurrence: ES)
  Receive Date: 20121102
  Receipt Date: 20121102
  Transmission Date: 20130627
  Serious: Yes (Life-Threatening, Hospitalization, Other)
  Sender: FDA-Public Use
  Company Number: PHHY2012ES097972

PATIENT
  Age: 80 Year
  Sex: Male

DRUGS (7)
  1. SINTROM [Suspect]
     Dosage: 4 mg, UNK
     Route: 048
     Dates: end: 20111003
  2. SINTROM [Interacting]
     Dates: start: 20111014
  3. IBUPROFEN [Interacting]
     Indication: BONE PAIN
     Dosage: UNK UKN, UNK
     Route: 048
     Dates: start: 20110929, end: 20111002
  4. METFORMIN HYDROCHLORIDE [Interacting]
     Indication: DIABETES MELLITUS
     Dosage: UNK UKN, UNK
     Route: 048
     Dates: end: 20111003
  5. FUROSEMIDE [Interacting]
     Indication: CARDIAC FAILURE
     Dosage: UNK UKN, UNK
     Route: 048
     Dates: start: 201009
  6. ENALAPRIL [Interacting]
     Indication: HYPERTENSION
     Dosage: UNK UKN, UNK
     Dates: start: 201010, end: 20111003
  7. ATORVASTATIN [Concomitant]
     Dosage: UNK UKN, UNK

REACTIONS (8)
  - Renal failure acute [Unknown]
  - Oliguria [Unknown]
  - Oedema peripheral [Unknown]
  - Cardiac failure [Unknown]
  - Dyspnoea [Unknown]
  - Coagulopathy [Unknown]
  - International normalised ratio increased [Unknown]
  - Drug interaction [Unknown]
